FAERS Safety Report 6992719-3 (Version None)
Quarter: 2010Q3

REPORT INFORMATION
  Report Type: 
  Country: None (occurrence: None)
  Receive Date: 20100917
  Receipt Date: 20100907
  Transmission Date: 20110219
  Serious: Yes (Other)
  Sender: FDA-Public Use
  Company Number: AT-WYE-H17367110

PATIENT
  Age: 54 Year
  Sex: Female

DRUGS (17)
  1. TIGECYCLINE [Suspect]
     Indication: PERITONITIS
     Dosage: UNKNOWN
  2. TIGECYCLINE [Suspect]
     Indication: ESCHERICHIA INFECTION
  3. TIGECYCLINE [Suspect]
     Indication: KLEBSIELLA INFECTION
  4. TIGECYCLINE [Suspect]
     Indication: CANDIDIASIS
  5. PHYTONADIONE [Concomitant]
     Indication: PROPHYLAXIS
     Dosage: UNKNOWN
  6. ANIDULAFUNGIN [Concomitant]
     Indication: PERITONITIS
     Dosage: UNKNOWN
  7. ANIDULAFUNGIN [Concomitant]
     Indication: KLEBSIELLA INFECTION
  8. ANIDULAFUNGIN [Concomitant]
     Indication: ESCHERICHIA INFECTION
  9. ANIDULAFUNGIN [Concomitant]
     Indication: CANDIDIASIS
  10. IMIPENEM AND CILASTATIN SODIUM [Concomitant]
     Indication: PERITONITIS
     Dosage: UNKNOWN
  11. IMIPENEM AND CILASTATIN SODIUM [Concomitant]
     Indication: KLEBSIELLA INFECTION
  12. IMIPENEM AND CILASTATIN SODIUM [Concomitant]
     Indication: CANDIDIASIS
  13. IMIPENEM AND CILASTATIN SODIUM [Concomitant]
     Indication: ESCHERICHIA INFECTION
  14. FLUCONAZOLE [Concomitant]
     Indication: PERITONITIS
     Dosage: UNKNOWN
  15. FLUCONAZOLE [Concomitant]
     Indication: KLEBSIELLA INFECTION
  16. FLUCONAZOLE [Concomitant]
     Indication: ESCHERICHIA INFECTION
  17. FLUCONAZOLE [Concomitant]
     Indication: CANDIDIASIS

REACTIONS (6)
  - ACTIVATED PARTIAL THROMBOPLASTIN TIME PROLONGED [None]
  - ANTITHROMBIN III DECREASED [None]
  - COAGULOPATHY [None]
  - FIBRIN D DIMER INCREASED [None]
  - HYPOCOAGULABLE STATE [None]
  - INTERNATIONAL NORMALISED RATIO INCREASED [None]
